FAERS Safety Report 13563358 (Version 1)
Quarter: 2017Q2

REPORT INFORMATION
  Report Type: Spontaneous
  Country: RU (occurrence: RU)
  Receive Date: 20170519
  Receipt Date: 20170519
  Transmission Date: 20170830
  Serious: Yes (Other)
  Sender: FDA-Public Use
  Company Number: RU-ASTRAZENECA-2017SE51971

PATIENT
  Age: 46 Year
  Sex: Male
  Weight: 103 kg

DRUGS (5)
  1. ROSUVASTATIN. [Concomitant]
     Active Substance: ROSUVASTATIN
  2. PERINDOPRIL [Concomitant]
     Active Substance: PERINDOPRIL
  3. METOPROLOL. [Concomitant]
     Active Substance: METOPROLOL
  4. ACETYLSALICYLIC ACID [Concomitant]
     Active Substance: ASPIRIN
  5. BRILINTA [Suspect]
     Active Substance: TICAGRELOR
     Indication: MYOCARDIAL INFARCTION
     Route: 048
     Dates: start: 20160412

REACTIONS (4)
  - Coronary artery thrombosis [Unknown]
  - Hepatic function abnormal [Recovered/Resolved]
  - Weight decreased [Unknown]
  - Gastric disorder [Unknown]

NARRATIVE: CASE EVENT DATE: 2016
